FAERS Safety Report 10925815 (Version 1)
Quarter: 2015Q1

REPORT INFORMATION
  Report Type: Spontaneous
  Country: TW (occurrence: None)
  Receive Date: 20150313
  Receipt Date: 20150313
  Transmission Date: 20150721
  Serious: Yes (Hospitalization)
  Sender: FDA-Public Use
  Company Number: FK201501212

PATIENT
  Age: 42 Year
  Sex: Female

DRUGS (6)
  1. VITAMIN B12 (VITAMIN B NOS) [Concomitant]
  2. FOLATE (FOLIC ACID) [Concomitant]
  3. CORTICOSTEROIDS [Concomitant]
     Active Substance: CORTICOSTEROID NOS
  4. CISPLATIN. [Suspect]
     Active Substance: CISPLATIN
     Indication: NON-SMALL CELL LUNG CANCER STAGE IV
     Dosage: 1 IN 3 WK
     Dates: start: 20130802
  5. PEMETREXED [Suspect]
     Active Substance: PEMETREXED
     Indication: NON-SMALL CELL LUNG CANCER STAGE IV
     Dates: start: 20130802
  6. GEFITINIB [Suspect]
     Active Substance: GEFITINIB
     Indication: NON-SMALL CELL LUNG CANCER STAGE IV
     Dosage: 1 IN 1 D
     Dates: start: 20130815

REACTIONS (1)
  - Toxic epidermal necrolysis [None]
